FAERS Safety Report 8231207-3 (Version None)
Quarter: 2012Q1

REPORT INFORMATION
  Report Type: 
  Country: None (occurrence: None)
  Receive Date: 20120323
  Receipt Date: 20120323
  Transmission Date: 20120608
  Serious: Yes (Other)
  Sender: FDA-Public Use
  Company Number: None

PATIENT
  Sex: Female

DRUGS (4)
  1. LOSARTAN POTASSIUM [Concomitant]
     Dates: start: 20110502, end: 20111117
  2. FUROSEMIDE [Concomitant]
     Route: 048
  3. FENOFIBRATE [Suspect]
  4. FENOFIBRATE [Suspect]
     Dates: start: 20110506, end: 20111117

REACTIONS (2)
  - BLOOD CREATINE INCREASED [None]
  - BLOOD UREA INCREASED [None]
